FAERS Safety Report 6449469-1 (Version None)
Quarter: 2009Q4

REPORT INFORMATION
  Report Type: 
  Country: None (occurrence: None)
  Receive Date: 20091120
  Receipt Date: 20091116
  Transmission Date: 20100525
  Serious: Yes (Hospitalization, Other)
  Sender: FDA-Public Use
  Company Number: US-TEVA-200033USA

PATIENT
  Age: 41 Year
  Sex: Male

DRUGS (1)
  1. PROPOFOL [Suspect]
     Indication: ANAESTHESIA
     Route: 042
     Dates: start: 20090626

REACTIONS (10)
  - BACTERAEMIA [None]
  - CHILLS [None]
  - HEPATIC ENZYME INCREASED [None]
  - HYPERTENSION [None]
  - INFLUENZA LIKE ILLNESS [None]
  - MALAISE [None]
  - PAIN [None]
  - PRODUCT CONTAMINATION MICROBIAL [None]
  - PYREXIA [None]
  - WEIGHT DECREASED [None]
